FAERS Safety Report 5098885-1 (Version None)
Quarter: 2006Q3

REPORT INFORMATION
  Report Type: 
  Country: None (occurrence: None)
  Receive Date: 20060907
  Receipt Date: 20060830
  Transmission Date: 20061208
  Serious: Yes (Other)
  Sender: FDA-Public Use
  Company Number: US-AVENTIS-200617353US

PATIENT
  Sex: Female
  Weight: 74.54 kg

DRUGS (16)
  1. LOVENOX [Suspect]
     Indication: DEEP VEIN THROMBOSIS
     Dosage: DOSE: UNK
     Dates: start: 20030201, end: 20030724
  2. LOVENOX [Suspect]
     Route: 058
     Dates: start: 20030728, end: 20030728
  3. LOVENOX [Suspect]
     Route: 058
     Dates: start: 20030728
  4. NUBAIN [Concomitant]
     Route: 042
     Dates: start: 20030727, end: 20030727
  5. PITOCIN [Concomitant]
     Dosage: DOSE: 20/1000CC LR
     Route: 042
     Dates: start: 20030727, end: 20030727
  6. PERCOCET [Concomitant]
     Dosage: DOSE: 2 TABLETS
     Route: 048
     Dates: start: 20030727
  7. XANAX [Concomitant]
  8. DEMEROL [Concomitant]
     Route: 030
     Dates: start: 20030728
  9. DILAUDID [Concomitant]
     Dosage: FREQUENCY: EVERY 4 TO 6 HOURS
     Route: 042
     Dates: start: 20030728, end: 20030728
  10. DILAUDID [Concomitant]
     Route: 042
     Dates: start: 20030728
  11. ATIVAN [Concomitant]
     Route: 042
  12. PHENERGAN HCL [Concomitant]
     Route: 030
     Dates: start: 20030728
  13. TYLENOL [Concomitant]
     Route: 048
     Dates: start: 20030727
  14. TYLENOL [Concomitant]
     Route: 048
     Dates: start: 20030728
  15. VITAMINS [Concomitant]
     Dosage: DOSE: UNK
  16. COUMADIN [Concomitant]
     Dosage: DOSE: UNK
     Dates: start: 20020701, end: 20021001

REACTIONS (8)
  - CHORIOAMNIONITIS [None]
  - PHLEBITIS [None]
  - PLACENTAL DISORDER [None]
  - PLACENTAL INSUFFICIENCY [None]
  - RED BLOOD CELL MORPHOLOGY ABNORMAL [None]
  - UMBILICAL CORD ABNORMALITY [None]
  - VASCULITIS [None]
  - WHITE BLOOD CELL COUNT INCREASED [None]
